FAERS Safety Report 6604287-6 (Version None)
Quarter: 2010Q1

REPORT INFORMATION
  Report Type: 
  Country: None (occurrence: None)
  Receive Date: 20100226
  Receipt Date: 20090806
  Transmission Date: 20100710
  Serious: No
  Sender: FDA-Public Use
  Company Number: A0800955A

PATIENT
  Age: 27 Year
  Sex: Male

DRUGS (7)
  1. LAMICTAL CD [Suspect]
     Indication: EPILEPSY
     Route: 048
     Dates: start: 20090601, end: 20090805
  2. KEPPRA [Concomitant]
  3. IBUPROFEN [Concomitant]
  4. ACETAMINOPHEN [Concomitant]
  5. ATARAX [Concomitant]
  6. CLOTRIMAZOLE [Concomitant]
  7. DOXYCYCLINE [Concomitant]

REACTIONS (3)
  - EXCORIATION [None]
  - RASH [None]
  - SKIN ULCER [None]
